FAERS Safety Report 4911153-0 (Version None)
Quarter: 2006Q1

REPORT INFORMATION
  Report Type: 
  Country: None (occurrence: None)
  Receive Date: 20060209
  Receipt Date: 20060127
  Transmission Date: 20060701
  Serious: Yes (Hospitalization, Disabling, Other)
  Sender: FDA-Public Use
  Company Number: 2004030610

PATIENT
  Age: 75 Year
  Sex: Female
  Weight: 62 kg

DRUGS (5)
  1. NEURONTIN [Suspect]
     Indication: POST HERPETIC NEURALGIA
     Dosage: 1500 MG (3 IN 1 D), ORAL
     Route: 048
     Dates: start: 20031201, end: 20040301
  2. CELEBREX [Suspect]
     Indication: PAIN
     Dosage: 200 MG (200 MG, 1 IN 1 D), ORAL
     Route: 048
     Dates: start: 20040501
  3. VOLTAREN [Concomitant]
  4. VENOSTASIN (HORSE CHESTNUT EXTRACT, THIAMINE HYDROCHLORIDE) [Concomitant]
  5. BIOMAGNESIN (CITRIC ACID, MAGNESIUM CITRATE, MAGNESIUM PHOSPHATE DIBAS [Concomitant]

REACTIONS (12)
  - ABASIA [None]
  - ARTHRALGIA [None]
  - GASTRIC ULCER [None]
  - HYPOPROTEINAEMIA [None]
  - IRON DEFICIENCY ANAEMIA [None]
  - MYALGIA [None]
  - MYOPATHY [None]
  - OEDEMA PERIPHERAL [None]
  - PAIN [None]
  - PAIN IN EXTREMITY [None]
  - PYLORIC STENOSIS [None]
  - WEIGHT DECREASED [None]
